FAERS Safety Report 6585018-5 (Version None)
Quarter: 2010Q1

REPORT INFORMATION
  Report Type: 
  Country: None (occurrence: None)
  Receive Date: 20100217
  Receipt Date: 20091217
  Transmission Date: 20100710
  Serious: No
  Sender: FDA-Public Use
  Company Number: A0835413A

PATIENT
  Age: 65 Year
  Sex: Female

DRUGS (7)
  1. VOTRIENT [Suspect]
     Dosage: 4TAB PER DAY
     Route: 048
     Dates: start: 20091213
  2. FENTANYL [Concomitant]
  3. CELEXA [Concomitant]
  4. IRON SUPPLEMENT [Concomitant]
  5. OSCAL [Concomitant]
  6. MULTI-VITAMIN [Concomitant]
  7. FISH OIL [Concomitant]

REACTIONS (1)
  - BLOOD PRESSURE INCREASED [None]
